FAERS Safety Report 9018681 (Version 2)
Quarter: 2013Q1

REPORT INFORMATION
  Report Type: Spontaneous
  Country: NL (occurrence: NL)
  Receive Date: 20130118
  Receipt Date: 20130122
  Transmission Date: 20140127
  Serious: Yes (Death, Other)
  Sender: FDA-Public Use
  Company Number: PHHY2013NL004497

PATIENT
  Sex: Female

DRUGS (4)
  1. ZOMETA [Suspect]
     Indication: BREAST CANCER METASTATIC
     Dosage: 4 MG, PER 100ML PER 28 DAYS
     Route: 042
  2. ZOMETA [Suspect]
     Dosage: 4 MG, PER 100ML PER 28 DAYS
     Route: 042
     Dates: start: 20120820
  3. ZOMETA [Suspect]
     Dosage: 4 MG, PER 100ML PER 28 DAYS
     Route: 042
     Dates: start: 20120919
  4. ZOMETA [Suspect]
     Dosage: 4 MG, PER 100ML PER 28 DAYS
     Route: 042
     Dates: end: 20121016

REACTIONS (2)
  - Pneumonia [Fatal]
  - General physical health deterioration [Unknown]
